FAERS Safety Report 23179762 (Version 1)
Quarter: 2023Q4

REPORT INFORMATION
  Report Type: Report from Study
  Country: CA (occurrence: CA)
  Receive Date: 20231114
  Receipt Date: 20231114
  Transmission Date: 20240109
  Serious: Yes (Other)
  Sender: FDA-Public Use
  Company Number: CA-UCBSA-2023053570

PATIENT
  Sex: Female

DRUGS (2)
  1. BRIVARACETAM [Suspect]
     Active Substance: BRIVARACETAM
     Indication: Epilepsy
     Dosage: 150 MILLIGRAM, 2X/DAY (BID)
  2. KEPPRA [Suspect]
     Active Substance: LEVETIRACETAM
     Indication: Epilepsy
     Dosage: 500 MILLIGRAM, 2X/DAY (BID)

REACTIONS (11)
  - Epilepsy [Unknown]
  - Gastric ulcer [Unknown]
  - Post-traumatic stress disorder [Unknown]
  - Photosensitivity reaction [Unknown]
  - Stress [Unknown]
  - Anxiety [Unknown]
  - Intentional product use issue [Unknown]
  - Insurance issue [Unknown]
  - Inability to afford medication [Unknown]
  - Drug ineffective [Unknown]
  - Multiple-drug resistance [Unknown]
